FAERS Safety Report 8618198-8 (Version None)
Quarter: 2012Q3

REPORT INFORMATION
  Report Type: 
  Country: None (occurrence: None)
  Receive Date: 20120824
  Receipt Date: 20111017
  Transmission Date: 20120928
  Serious: No
  Sender: FDA-Public Use
  Company Number: US-ASTRAZENECA-2011SE52027

PATIENT
  Age: 76 Year
  Sex: Male
  Weight: 79.4 kg

DRUGS (10)
  1. SIMVASTATIN [Concomitant]
  2. THEOPHYLLINE [Concomitant]
  3. ALBUTEROL [Concomitant]
  4. FUROSEMIDE [Concomitant]
  5. NECLOVIN [Concomitant]
  6. VITAMIN TAB [Concomitant]
  7. SYMBICORT [Suspect]
     Indication: CHRONIC OBSTRUCTIVE PULMONARY DISEASE
     Dosage: TWO PUFFS DAILY
     Route: 055
     Dates: start: 20080101
  8. LISINOPRIL [Concomitant]
     Route: 048
  9. MINERAL TAB [Concomitant]
  10. CLORCAN [Concomitant]

REACTIONS (3)
  - CATARACT [None]
  - MACULAR DEGENERATION [None]
  - GLAUCOMA [None]
